FAERS Safety Report 13287499 (Version 1)
Quarter: 2017Q1

REPORT INFORMATION
  Report Type: Report from Study
  Country: US (occurrence: US)
  Receive Date: 20170302
  Receipt Date: 20170302
  Transmission Date: 20170428
  Serious: Yes (Life-Threatening, Hospitalization)
  Sender: FDA-Public Use
  Company Number: US-EISAI MEDICAL RESEARCH-EC-2016-017903

PATIENT
  Age: 62 Year
  Sex: Female

DRUGS (3)
  1. LENVIMA [Suspect]
     Active Substance: LENVATINIB
     Route: 048
     Dates: start: 20160628, end: 20160727
  2. LENVIMA [Suspect]
     Active Substance: LENVATINIB
     Route: 048
     Dates: start: 20160728, end: 201702
  3. LENVIMA [Suspect]
     Active Substance: LENVATINIB
     Indication: THYROID CANCER
     Route: 048
     Dates: start: 20160602, end: 20160627

REACTIONS (10)
  - Oropharyngeal pain [Not Recovered/Not Resolved]
  - Glossodynia [Recovered/Resolved]
  - Cough [Recovering/Resolving]
  - Hypertension [Recovering/Resolving]
  - Respiratory failure [Recovered/Resolved]
  - Breath sounds abnormal [Recovering/Resolving]
  - Dyspnoea [Recovered/Resolved]
  - Oral pain [Recovering/Resolving]
  - Headache [Recovered/Resolved]
  - Diarrhoea [Recovered/Resolved]

NARRATIVE: CASE EVENT DATE: 201606
